FAERS Safety Report 10726839 (Version 2)
Quarter: 2015Q3

REPORT INFORMATION
  Report Type: Report from Study
  Country: US (occurrence: US)
  Receive Date: 20150121
  Receipt Date: 20150728
  Transmission Date: 20151125
  Serious: Yes (Other)
  Sender: FDA-Public Use
  Company Number: US-SA-2014SA139096

PATIENT
  Age: 50 Year
  Sex: Male
  Weight: 51.7 kg

DRUGS (3)
  1. DILANTIN [Concomitant]
     Active Substance: PHENYTOIN
     Indication: SEIZURE
  2. AUBAGIO [Suspect]
     Active Substance: TERIFLUNOMIDE
     Indication: MULTIPLE SCLEROSIS
     Route: 048
     Dates: start: 20140809
  3. DEPAKOTE [Concomitant]
     Active Substance: DIVALPROEX SODIUM
     Indication: SEIZURE

REACTIONS (6)
  - Limb discomfort [Unknown]
  - Balance disorder [Unknown]
  - Influenza [Unknown]
  - Paraesthesia [Unknown]
  - Gait disturbance [Unknown]
  - JC virus test positive [Unknown]

NARRATIVE: CASE EVENT DATE: 2014
